FAERS Safety Report 8507858-5 (Version None)
Quarter: 2012Q3

REPORT INFORMATION
  Report Type: 
  Country: None (occurrence: None)
  Receive Date: 20120713
  Receipt Date: 20120703
  Transmission Date: 20120928
  Serious: No
  Sender: FDA-Public Use
  Company Number: CA-JNJFOC-20120702492

PATIENT
  Sex: Female
  Weight: 68.9 kg

DRUGS (4)
  1. CALCIUM [Concomitant]
     Route: 065
  2. VITAMIN D [Concomitant]
     Route: 065
  3. REMICADE [Suspect]
     Indication: COLITIS ULCERATIVE
     Route: 042
     Dates: start: 20060617
  4. REMICADE [Suspect]
     Route: 042
     Dates: start: 20120523

REACTIONS (2)
  - NASOPHARYNGITIS [None]
  - INFLUENZA LIKE ILLNESS [None]
